FAERS Safety Report 14012774 (Version 1)
Quarter: 2017Q3

REPORT INFORMATION
  Report Type: Spontaneous
  Country: US (occurrence: US)
  Receive Date: 20170926
  Receipt Date: 20170926
  Transmission Date: 20171128
  Serious: Yes (Death, Hospitalization, Other)
  Sender: FDA-Public Use
  Company Number: US-ASTRAZENECA-2017SE95327

PATIENT
  Age: 40 Year
  Sex: Female
  Weight: 63.3 kg

DRUGS (24)
  1. POTASSIUM CHLORIDE. [Concomitant]
     Active Substance: POTASSIUM CHLORIDE
     Dates: start: 20170418
  2. NITROGLYCERIN. [Concomitant]
     Active Substance: NITROGLYCERIN
  3. CO-ENZYME Q 10 [Concomitant]
     Dates: start: 20150226
  4. CLARITIN [Concomitant]
     Active Substance: LORATADINE
     Dates: start: 20160912
  5. JANUVIA [Concomitant]
     Active Substance: SITAGLIPTIN PHOSPHATE
     Dates: start: 20150826
  6. MACROBID [Concomitant]
     Active Substance: NITROFURANTOIN\NITROFURANTOIN MONOHYDRATE
     Dates: start: 201708
  7. COUMNADIN [Concomitant]
  8. METRELEPTIN [Suspect]
     Active Substance: METRELEPTIN
     Indication: NON-ALCOHOLIC STEATOHEPATITIS
     Route: 058
     Dates: start: 20161104, end: 20170403
  9. METRELEPTIN [Suspect]
     Active Substance: METRELEPTIN
     Indication: NON-ALCOHOLIC STEATOHEPATITIS
     Route: 058
     Dates: start: 20170404, end: 20170803
  10. SPIRONOLACTONE. [Concomitant]
     Active Substance: SPIRONOLACTONE
  11. IMDUR [Suspect]
     Active Substance: ISOSORBIDE MONONITRATE
     Route: 048
     Dates: start: 201705
  12. LOSARTAN POTASSIUM. [Concomitant]
     Active Substance: LOSARTAN POTASSIUM
     Dates: start: 20170418
  13. ERGOCALCIFEROL. [Concomitant]
     Active Substance: ERGOCALCIFEROL
     Dates: start: 201608
  14. ASPIRIN EC [Suspect]
     Active Substance: ASPIRIN
     Route: 065
     Dates: start: 20150311
  15. ELIQUIS [Suspect]
     Active Substance: APIXABAN
     Indication: ATRIAL FIBRILLATION
     Dosage: 5.0MG UNKNOWN
     Route: 048
     Dates: start: 20170717, end: 201708
  16. DOFETILIDE. [Concomitant]
     Active Substance: DOFETILIDE
     Dates: start: 20161207
  17. METOPROLOL SUCCINATE. [Suspect]
     Active Substance: METOPROLOL SUCCINATE
     Route: 048
     Dates: start: 201508
  18. CLONAZEPAM. [Suspect]
     Active Substance: CLONAZEPAM
     Route: 065
     Dates: start: 201610
  19. TICAGRELOR. [Suspect]
     Active Substance: TICAGRELOR
     Route: 048
     Dates: start: 20170412
  20. AMOXICILLIN TRIHYDRATE [Concomitant]
     Active Substance: AMOXICILLIN
  21. TORSEMIDE. [Concomitant]
     Active Substance: TORSEMIDE
  22. NIFEREX-ISO FORTE [Concomitant]
  23. NORETHINDRONE. [Concomitant]
     Active Substance: NORETHINDRONE
  24. COLECALCIFEROL [Concomitant]
     Active Substance: CHOLECALCIFEROL

REACTIONS (14)
  - Cardiac failure acute [Unknown]
  - Ischaemic cardiomyopathy [Unknown]
  - Chest pain [Unknown]
  - Bundle branch block right [Unknown]
  - Atrioventricular block second degree [Unknown]
  - Pulmonary oedema [Unknown]
  - Bundle branch block left [Unknown]
  - Sudden death [Fatal]
  - Haemorrhagic anaemia [Unknown]
  - Non-alcoholic steatohepatitis [Unknown]
  - Lipodystrophy acquired [Unknown]
  - Blood pressure decreased [Unknown]
  - Menometrorrhagia [Unknown]
  - Atrioventricular block first degree [Unknown]

NARRATIVE: CASE EVENT DATE: 20170807
